FAERS Safety Report 17239860 (Version 2)
Quarter: 2020Q1

REPORT INFORMATION
  Report Type: Spontaneous
  Country: ES (occurrence: ES)
  Receive Date: 20200106
  Receipt Date: 20200226
  Transmission Date: 20200409
  Serious: Yes (Other)
  Sender: FDA-Public Use
  Company Number: ES-AUROBINDO-AUR-APL-2020-000488

PATIENT
  Age: 37 Year
  Sex: Female

DRUGS (2)
  1. IBUPROFEN 600MG [Suspect]
     Active Substance: IBUPROFEN
     Dosage: UNK
     Route: 048
     Dates: start: 2008
  2. IBUPROFEN 600MG [Suspect]
     Active Substance: IBUPROFEN
     Indication: PRODUCT USED FOR UNKNOWN INDICATION
     Dosage: 600 MILLIGRAM
     Route: 065

REACTIONS (1)
  - Angioedema [Unknown]

NARRATIVE: CASE EVENT DATE: 2008
